FAERS Safety Report 12967105 (Version 1)
Quarter: 2016Q4

REPORT INFORMATION
  Report Type: Spontaneous
  Country: US (occurrence: US)
  Receive Date: 20161122
  Receipt Date: 20161122
  Transmission Date: 20170207
  Serious: Yes (Hospitalization)
  Sender: FDA-Public Use
  Company Number: None

PATIENT
  Age: 50 Year
  Sex: Male
  Weight: 72.58 kg

DRUGS (5)
  1. TRAZODONE [Concomitant]
     Active Substance: TRAZODONE HYDROCHLORIDE
  2. METHADONE [Concomitant]
     Active Substance: METHADONE HYDROCHLORIDE
  3. METHODONE [Suspect]
     Active Substance: METHADONE HYDROCHLORIDE
     Indication: PAIN
     Dosage: 1/4 OF A BOTTLE - 1 IN THE MORNING - PO
     Route: 048
     Dates: start: 19910206
  4. LIMENTAL [Concomitant]
  5. LAMOTRIGINE. [Concomitant]
     Active Substance: LAMOTRIGINE

REACTIONS (4)
  - Withdrawal syndrome [None]
  - Drug dose omission [None]
  - Malaise [None]
  - Drug ineffective [None]

NARRATIVE: CASE EVENT DATE: 20160901
